FAERS Safety Report 19784537 (Version 2)
Quarter: 2021Q3

REPORT INFORMATION
  Report Type: Report from Study
  Country: None (occurrence: CA)
  Receive Date: 20210903
  Receipt Date: 20210923
  Transmission Date: 20211014
  Serious: Yes (Hospitalization, Other)
  Sender: FDA-Public Use
  Company Number: CA-ABBVIE-21K-028-4064741-00

PATIENT
  Age: 67 Year
  Sex: Female
  Weight: 62.65 kg

DRUGS (1)
  1. HUMIRA [Suspect]
     Active Substance: ADALIMUMAB
     Indication: CROHN^S DISEASE
     Route: 058
     Dates: start: 20170209

REACTIONS (5)
  - Pain [Recovered/Resolved]
  - Abdominal distension [Recovered/Resolved]
  - Gastrointestinal disorder [Unknown]
  - Obstruction [Recovered/Resolved]
  - Terminal ileitis [Unknown]

NARRATIVE: CASE EVENT DATE: 202107
